FAERS Safety Report 6314098-7 (Version None)
Quarter: 2009Q3

REPORT INFORMATION
  Report Type: 
  Country: None (occurrence: None)
  Receive Date: 20090818
  Receipt Date: 20090730
  Transmission Date: 20100115
  Serious: Yes (Other)
  Sender: FDA-Public Use
  Company Number: PHHY2009JP19490

PATIENT
  Sex: Male

DRUGS (6)
  1. TASIGNA [Suspect]
     Indication: CHRONIC MYELOID LEUKAEMIA
     Dosage: 400 MG, DAILY
     Route: 048
     Dates: start: 20090508, end: 20090513
  2. SALOBEL [Concomitant]
     Dosage: UNK
     Route: 048
     Dates: start: 20090416
  3. SELBEX [Concomitant]
     Dosage: UNK
     Route: 048
     Dates: start: 20090416
  4. GASTER D [Concomitant]
     Dosage: UNK
     Route: 048
     Dates: start: 20090416
  5. CEFDINIR [Concomitant]
     Dosage: UNK
     Route: 048
     Dates: start: 20090416, end: 20090507
  6. GENTAMICIN [Concomitant]

REACTIONS (2)
  - ELECTROCARDIOGRAM QT PROLONGED [None]
  - LIVER DISORDER [None]
